FAERS Safety Report 5021225-0 (Version None)
Quarter: 2006Q2

REPORT INFORMATION
  Report Type: 
  Country: None (occurrence: None)
  Receive Date: 20060608
  Receipt Date: 20050629
  Transmission Date: 20061013
  Serious: Yes (Hospitalization, Disabling)
  Sender: FDA-Public Use
  Company Number: US-ROCHE-409447

PATIENT
  Age: 36 Year
  Sex: Male
  Weight: 67.6 kg

DRUGS (2)
  1. ACCUTANE [Suspect]
     Route: 048
     Dates: start: 19861016, end: 19870219
  2. ACCUTANE [Suspect]
     Route: 048
     Dates: start: 19960710, end: 19961216

REACTIONS (61)
  - ACROCHORDON EXCISION [None]
  - ANXIETY [None]
  - ARTHROPOD STING [None]
  - ATRIAL FIBRILLATION [None]
  - BACK PAIN [None]
  - BASAL CELL CARCINOMA [None]
  - BRONCHITIS [None]
  - CARDIAC FAILURE CONGESTIVE [None]
  - CHEST PAIN [None]
  - CHOLECYSTITIS CHRONIC [None]
  - CHOLELITHIASIS [None]
  - CHRONIC OBSTRUCTIVE PULMONARY DISEASE [None]
  - COLITIS [None]
  - COLITIS ULCERATIVE [None]
  - CONJUNCTIVITIS [None]
  - COUGH [None]
  - CYSTITIS [None]
  - DIALYSIS [None]
  - DRY EYE [None]
  - DRY SKIN [None]
  - DUPUYTREN'S CONTRACTURE [None]
  - EAR INFECTION [None]
  - ERYTHEMA [None]
  - GANGLION [None]
  - GASTROINTESTINAL DISORDER [None]
  - HEADACHE [None]
  - HEPATITIS C [None]
  - HYPOTENSION [None]
  - IDIOPATHIC THROMBOCYTOPENIC PURPURA [None]
  - INFLAMMATORY BOWEL DISEASE [None]
  - INGUINAL MASS [None]
  - INJURY [None]
  - INTESTINAL HAEMORRHAGE [None]
  - ISCHAEMIC HEPATITIS [None]
  - LIMB INJURY [None]
  - LUNG CONSOLIDATION [None]
  - MENISCUS LESION [None]
  - METABOLIC ACIDOSIS [None]
  - MULTI-ORGAN DISORDER [None]
  - MUSCLE STRAIN [None]
  - MUSCULOSKELETAL CHEST PAIN [None]
  - MUSCULOSKELETAL PAIN [None]
  - NEUROPATHY PERIPHERAL [None]
  - PANIC DISORDER [None]
  - PHARYNGITIS [None]
  - PHARYNGOLARYNGEAL PAIN [None]
  - PILONIDAL SINUS REPAIR [None]
  - PNEUMONIA STAPHYLOCOCCAL [None]
  - PULMONARY OEDEMA [None]
  - RADICULAR PAIN [None]
  - RECTAL HAEMORRHAGE [None]
  - RENAL FAILURE [None]
  - RENAL FAILURE ACUTE [None]
  - ROAD TRAFFIC ACCIDENT [None]
  - SCIATICA [None]
  - SEPSIS [None]
  - SHOULDER PAIN [None]
  - SINUSITIS [None]
  - TENDONITIS [None]
  - THROMBOTIC THROMBOCYTOPENIC PURPURA [None]
  - UPPER RESPIRATORY TRACT INFECTION [None]
